FAERS Safety Report 5481927-9 (Version None)
Quarter: 2007Q4

REPORT INFORMATION
  Report Type: 
  Country: None (occurrence: None)
  Receive Date: 20071005
  Receipt Date: 20070928
  Transmission Date: 20080405
  Serious: Yes (Other)
  Sender: FDA-Public Use
  Company Number: 163-21880-06111219

PATIENT
  Age: 68 Year
  Sex: Male

DRUGS (9)
  1. REVLIMID [Suspect]
     Indication: MULTIPLE MYELOMA
     Dosage: 25 MG, 1 IN 1 D, ORAL
     Route: 048
     Dates: start: 20060713
  2. ASPIRIN [Concomitant]
  3. FERROUS SULFATE TAB [Concomitant]
  4. FOLIC ACID [Concomitant]
  5. GLIPIZIDE [Concomitant]
  6. METOPROLOL TARTRATE [Concomitant]
  7. TERAZOSIN HCL [Concomitant]
  8. FUROSEMIDE [Concomitant]
  9. FOSINOPRIL SODIUM [Concomitant]

REACTIONS (2)
  - CATARACT [None]
  - FLUID RETENTION [None]
